FAERS Safety Report 4994178-9 (Version None)
Quarter: 2006Q2

REPORT INFORMATION
  Report Type: 
  Country: None (occurrence: None)
  Receive Date: 20060503
  Receipt Date: 20060420
  Transmission Date: 20061013
  Serious: Yes (Other)
  Sender: FDA-Public Use
  Company Number: 20060656236

PATIENT
  Age: 75 Year
  Sex: Female
  Weight: 43 kg

DRUGS (7)
  1. AZULFIDINE [Suspect]
     Indication: RHEUMATOID ARTHRITIS
     Dosage: ORAL
     Route: 048
     Dates: start: 20050801
  2. LOXONIN (LOXOPROFEN SODIUM) [Concomitant]
  3. MARZULENE (SODIUM GUALENATE) [Concomitant]
  4. ALFACALCIDOL (ALFACALCIDOL) [Concomitant]
  5. OSTEN (IPRIFLAVONE) [Concomitant]
  6. NORVASC [Concomitant]
  7. ASPIRIN [Concomitant]

REACTIONS (2)
  - HAEMORRHAGE SUBCUTANEOUS [None]
  - PANCYTOPENIA [None]
